FAERS Safety Report 8607553-8 (Version None)
Quarter: 2012Q3

REPORT INFORMATION
  Report Type: 
  Country: None (occurrence: None)
  Receive Date: 20120821
  Receipt Date: 20120809
  Transmission Date: 20120928
  Serious: Yes (Hospitalization)
  Sender: FDA-Public Use
  Company Number: US-BAYER-2012-082176

PATIENT
  Age: 41 Year
  Sex: Female
  Weight: 57.143 kg

DRUGS (4)
  1. VICODIN [Concomitant]
     Dosage: 7.5 MG, PRN
     Route: 048
     Dates: start: 20081111
  2. YAZ [Suspect]
  3. DROSPIRENONE AND ETHINYL ESTRADIOL [Suspect]
  4. HYDROCODONE BITARTRATE + ACETAMINOPHEN [Concomitant]

REACTIONS (1)
  - PHLEBITIS SUPERFICIAL [None]
